FAERS Safety Report 7578268-2 (Version None)
Quarter: 2011Q2

REPORT INFORMATION
  Report Type: 
  Country: None (occurrence: None)
  Receive Date: 20110628
  Receipt Date: 20110614
  Transmission Date: 20111010
  Serious: Yes (Hospitalization)
  Sender: FDA-Public Use
  Company Number: JP-JNJFOC-20100507115

PATIENT
  Age: 27 Year
  Sex: Male
  Weight: 55 kg

DRUGS (11)
  1. ALOSITOL [Concomitant]
     Indication: HYPERTENSION
     Route: 048
     Dates: start: 20070701, end: 20100810
  2. REMICADE [Suspect]
     Indication: PUSTULAR PSORIASIS
     Route: 042
     Dates: start: 20100811
  3. REMICADE [Suspect]
     Route: 042
     Dates: start: 20100519
  4. REMICADE [Suspect]
     Route: 042
     Dates: start: 20101006
  5. FERROUS CITRATE [Concomitant]
     Indication: RENAL FAILURE
     Route: 048
     Dates: start: 20070701
  6. OLOPATADINE HCL [Concomitant]
     Indication: PUSTULAR PSORIASIS
     Route: 048
     Dates: start: 20070701, end: 20100810
  7. REMICADE [Suspect]
     Route: 042
     Dates: start: 20100422
  8. REMICADE [Suspect]
     Route: 042
     Dates: start: 20100614
  9. NERISONA [Concomitant]
     Indication: PUSTULAR PSORIASIS
     Dosage: ROUTE: OD
     Route: 061
     Dates: start: 20070701, end: 20100509
  10. WHITE PETROLATUM [Concomitant]
     Indication: PUSTULAR PSORIASIS
     Dosage: ROUTE: OD  DOSE 2 GM
     Route: 061
     Dates: start: 20070701, end: 20100509
  11. ETRETINATE [Concomitant]
     Indication: PUSTULAR PSORIASIS
     Route: 048

REACTIONS (1)
  - ENTERITIS [None]
